FAERS Safety Report 8632683 (Version 2)
Quarter: 2014Q1

REPORT INFORMATION
  Report Type: Spontaneous
  Country: US (occurrence: US)
  Receive Date: 20120625
  Receipt Date: 20140324
  Transmission Date: 20141002
  Serious: Yes (Hospitalization)
  Sender: FDA-Public Use
  Company Number: US-BAYER-2012-062074

PATIENT
  Age: 49 Year
  Sex: Female
  Weight: 91 kg

DRUGS (21)
  1. YAZ [Suspect]
  2. GIANVI [Suspect]
  3. PHENTERMINE [Concomitant]
     Indication: WEIGHT DECREASED
     Dosage: 37.5 MG, UNK
     Dates: start: 201110, end: 20120107
  4. ASPIRIN [Concomitant]
     Dosage: 325 MG, BID
     Dates: start: 20120104
  5. DRISDOL [Concomitant]
     Dosage: 50,000
  6. FERROUS SULFATE [Concomitant]
     Dosage: 325 MG, UNK
     Dates: start: 20111104
  7. VITAMIN D [Concomitant]
     Dosage: 50,000 EVERY WEEK
     Dates: start: 20111104
  8. CALCIUM [Concomitant]
     Dosage: 1200 MG, DAILY
     Dates: start: 20111104
  9. CYCLOBENZAPRINE [Concomitant]
     Indication: MYALGIA
     Dosage: 10 MG, UNK
     Dates: start: 20120104
  10. CYCLOBENZAPRINE [Concomitant]
     Indication: MUSCLE SPASMS
  11. TRAZODONE [Concomitant]
     Dosage: 50 MG, HS, 1-3 TABLETS
     Dates: start: 20111104
  12. TRAMADOL [Concomitant]
     Dosage: 50 MG, 1-2 TIMES A DAY
     Dates: start: 20111215, end: 20120107
  13. MELOXICAM [Concomitant]
     Dosage: 7.5 MG, BID
     Dates: start: 20111215, end: 20120107
  14. BISACODYL [Concomitant]
     Dosage: 5 MG, UNK
     Dates: start: 20120107
  15. CELEXA [Concomitant]
     Dosage: 20 MG, UNK
     Dates: start: 20111104
  16. GERITOL [FERRIC AMMONIUM CITRATE,METHIONINE,VITAMIN B NOS] [Concomitant]
     Dosage: AS DIRECTED
     Dates: start: 20120107
  17. LORTAB [Concomitant]
     Dosage: 5-500 MG
     Dates: start: 20120107
  18. CITALOPRAM [Concomitant]
     Dosage: 20 MG, DAILY
  19. FLEXERIL [Concomitant]
     Dosage: 10 MG, HS
  20. ORAL CONTRACEPTIVE NOS [Concomitant]
  21. STOOL SOFTENER [Concomitant]
     Dosage: UNK
     Dates: start: 20111202

REACTIONS (2)
  - Pulmonary embolism [Recovered/Resolved]
  - Deep vein thrombosis [Recovered/Resolved]
